FAERS Safety Report 7815271-9 (Version None)
Quarter: 2011Q4

REPORT INFORMATION
  Report Type: 
  Country: None (occurrence: None)
  Receive Date: 20111014
  Receipt Date: 20111013
  Transmission Date: 20120403
  Serious: Yes (Other)
  Sender: FDA-Public Use
  Company Number: SG-BAYER-2011-098707

PATIENT
  Age: 37 Year
  Sex: Female

DRUGS (2)
  1. DICLOFENAC SODIUM [Suspect]
     Dosage: 75 MG, UNK
     Route: 030
  2. CIPROFLOXACIN [Suspect]
     Dosage: 500 MG, UNK
     Route: 048

REACTIONS (1)
  - PERIORBITAL OEDEMA [None]
